FAERS Safety Report 18229993 (Version 11)
Quarter: 2021Q3

REPORT INFORMATION
  Report Type: Spontaneous
  Country: US (occurrence: US)
  Receive Date: 20200904
  Receipt Date: 20210916
  Transmission Date: 20211014
  Serious: Yes (Other)
  Sender: FDA-Public Use
  Company Number: US-GLAXOSMITHKLINE-US2020AMR175898

PATIENT
  Sex: Female

DRUGS (13)
  1. ZEJULA [Suspect]
     Active Substance: NIRAPARIB
     Dosage: 300 MG, QD
     Dates: start: 20200821
  2. ZEJULA [Suspect]
     Active Substance: NIRAPARIB
     Dosage: 200 MG, QD
     Route: 048
     Dates: start: 20200821
  3. ZEJULA [Suspect]
     Active Substance: NIRAPARIB
     Dosage: 300 MG, QD
     Route: 048
  4. ZEJULA [Suspect]
     Active Substance: NIRAPARIB
     Dosage: 200 MG, QD
     Dates: start: 202102
  5. ZEJULA [Suspect]
     Active Substance: NIRAPARIB
     Dosage: 200 MG, QD
  6. XARELTO [Concomitant]
     Active Substance: RIVAROXABAN
     Indication: PRODUCT USED FOR UNKNOWN INDICATION
     Dosage: 10 MG, QD
  7. COVID?19 VACCINE NOS. [Concomitant]
     Active Substance: COVID-19 VACCINE NOS
     Indication: COVID-19 PROPHYLAXIS
     Dosage: UNK
  8. ZEJULA [Suspect]
     Active Substance: NIRAPARIB
     Indication: OVARIAN CANCER
     Dosage: 300 MG, QD
     Route: 048
     Dates: start: 20200812
  9. MAGNESIUM [Concomitant]
     Active Substance: MAGNESIUM
     Indication: PRODUCT USED FOR UNKNOWN INDICATION
     Dosage: UNK
  10. ZEJULA [Suspect]
     Active Substance: NIRAPARIB
     Dosage: 200 MG, QD IN THE PM WITH FOOD
  11. ZEJULA [Suspect]
     Active Substance: NIRAPARIB
     Dosage: 300 MG, QD IN THE AM WITH FOOD
     Route: 048
  12. MELATONIN GUMMIES [Concomitant]
     Indication: PRODUCT USED FOR UNKNOWN INDICATION
     Dosage: UNK
  13. ZEJULA [Suspect]
     Active Substance: NIRAPARIB
     Dosage: 300 MG, QD
     Route: 048

REACTIONS (14)
  - Hyperthyroidism [Unknown]
  - Dizziness [Unknown]
  - Carbohydrate antigen 125 increased [Unknown]
  - Extra dose administered [Unknown]
  - Insomnia [Not Recovered/Not Resolved]
  - Nausea [Not Recovered/Not Resolved]
  - Arthralgia [Unknown]
  - Blood count abnormal [Unknown]
  - Heart rate increased [Unknown]
  - Blood cholesterol increased [Unknown]
  - Blood pressure increased [Not Recovered/Not Resolved]
  - Energy increased [Unknown]
  - Thyroid mass [Unknown]
  - Haemoglobin decreased [Unknown]
